FAERS Safety Report 9761595 (Version 1)
Quarter: 2013Q4

REPORT INFORMATION
  Report Type: Spontaneous
  Country: US (occurrence: US)
  Receive Date: 20131216
  Receipt Date: 20131216
  Transmission Date: 20140711
  Serious: Yes (Hospitalization)
  Sender: FDA-Public Use
  Company Number: US-B.I. PHARMACEUTICALS,INC./RIDGEFIELD-2013-BI-41916GD

PATIENT
  Age: 38 Year
  Sex: Female

DRUGS (2)
  1. CLONIDINE [Suspect]
     Indication: ANXIETY DISORDER
  2. ENOXAPARIN [Concomitant]
     Indication: HYPERCOAGULATION

REACTIONS (1)
  - Presyncope [Recovered/Resolved]
